FAERS Safety Report 10269598 (Version 2)
Quarter: 2014Q3

REPORT INFORMATION
  Report Type: Other
  Country: US (occurrence: US)
  Receive Date: 20140701
  Receipt Date: 20140701
  Transmission Date: 20150326
  Serious: Yes (Hospitalization, Other)
  Sender: FDA-Public Use
  Company Number: US-GLENMARK GENERICS INC.-2014GMK009904

PATIENT
  Age: 13 Year
  Sex: Male

DRUGS (3)
  1. LAMOTRIGINE. [Concomitant]
     Active Substance: LAMOTRIGINE
     Indication: CONVULSION
     Dosage: UNK
  2. TOPIRAMATE. [Suspect]
     Active Substance: TOPIRAMATE
     Indication: ANTISOCIAL BEHAVIOUR
  3. TOPIRAMATE. [Suspect]
     Active Substance: TOPIRAMATE
     Indication: AGGRESSION
     Dosage: UNK
     Dates: start: 20140421

REACTIONS (11)
  - Verbal abuse [Unknown]
  - Enuresis [Unknown]
  - Product substitution issue [Unknown]
  - Off label use [Unknown]
  - Condition aggravated [Unknown]
  - Aggression [Unknown]
  - Abnormal behaviour [Unknown]
  - Insomnia [Unknown]
  - Drug ineffective [Unknown]
  - Antisocial behaviour [Unknown]
  - Headache [Unknown]
